FAERS Safety Report 14218602 (Version 2)
Quarter: 2018Q1

REPORT INFORMATION
  Report Type: Spontaneous
  Country: DE (occurrence: DE)
  Receive Date: 20171123
  Receipt Date: 20180302
  Transmission Date: 20180508
  Serious: Yes (Disabling, Other)
  Sender: FDA-Public Use
  Company Number: DE-ASTRAZENECA-2017SF17782

PATIENT
  Sex: Male

DRUGS (9)
  1. DOXEPIN [Interacting]
     Active Substance: DOXEPIN
     Route: 065
  2. PANTOZOL [Concomitant]
     Active Substance: PANTOPRAZOLE SODIUM
  3. SIMVAGAMMA [Concomitant]
  4. TRILEPTAL [Interacting]
     Active Substance: OXCARBAZEPINE
     Route: 065
  5. QUETIAPINE. [Suspect]
     Active Substance: QUETIAPINE
     Route: 048
  6. RAMIPRIL COMP-CT [Concomitant]
  7. TORASEMIDE [Concomitant]
     Active Substance: TORSEMIDE
  8. TAVOR (LORAZEPAM) [Concomitant]
     Active Substance: LORAZEPAM
     Dates: start: 20090903
  9. METOPROLOL. [Concomitant]
     Active Substance: METOPROLOL

REACTIONS (2)
  - Cardiac failure [Recovered/Resolved with Sequelae]
  - Drug interaction [Recovered/Resolved with Sequelae]
